FAERS Safety Report 10100579 (Version 3)
Quarter: 2014Q2

REPORT INFORMATION
  Report Type: Report from Study
  Country: IN (occurrence: IN)
  Receive Date: 20140423
  Receipt Date: 20140521
  Transmission Date: 20141212
  Serious: Yes (Hospitalization)
  Sender: FDA-Public Use
  Company Number: PHHY2014IN049480

PATIENT
  Age: 73 Year
  Sex: Female

DRUGS (4)
  1. ACLASTA [Suspect]
     Indication: OSTEOPOROSIS
     Dosage: 5 MG PER 100 ML PER YEAR
     Route: 042
  2. ACLASTA [Suspect]
     Dosage: 5 MG PER 100 ML PER YEAR
     Route: 042
  3. ACLASTA [Suspect]
     Dosage: 5 MG PER 100 ML PER YEAR
     Route: 042
     Dates: start: 20131218
  4. CALCIUM [Concomitant]

REACTIONS (1)
  - Lower limb fracture [Not Recovered/Not Resolved]
